FAERS Safety Report 25441191 (Version 3)
Quarter: 2025Q4

REPORT INFORMATION
  Report Type: Spontaneous
  Country: US (occurrence: None)
  Receive Date: 20250616
  Receipt Date: 20251215
  Transmission Date: 20260117
  Serious: No
  Sender: UCB
  Company Number: US-UCBSA-2025014963

PATIENT
  Age: 55 Year

DRUGS (1)
  1. BIMZELX [Suspect]
     Active Substance: BIMEKIZUMAB-BKZX
     Indication: Hidradenitis
     Dosage: 320 MILLIGRAM, EV 2 WEEKS(QOW), FOR WEEKS 2-16 THEN EVERY 4 WEEKS

REACTIONS (6)
  - Fatigue [Unknown]
  - Hidradenitis [Unknown]
  - Condition aggravated [Unknown]
  - Headache [Unknown]
  - Tongue eruption [Unknown]
  - Adverse drug reaction [Unknown]
